FAERS Safety Report 9380069 (Version 1)
Quarter: 2013Q3

REPORT INFORMATION
  Report Type: Spontaneous
  Country: US (occurrence: None)
  Receive Date: 20130701
  Receipt Date: 20130701
  Transmission Date: 20140515
  Serious: Yes (Other)
  Sender: FDA-Public Use
  Company Number: None

PATIENT
  Age: 60 Year
  Sex: Male

DRUGS (10)
  1. ZYTIGA [Suspect]
     Indication: PROSTATE CANCER
     Route: 048
     Dates: start: 20130601
  2. ACTOS [Concomitant]
  3. METFORMIN [Concomitant]
  4. AMBIEN [Concomitant]
  5. ASPIRIN [Concomitant]
  6. ONDANSETRON [Concomitant]
  7. IBUPROFEN [Concomitant]
  8. FOSINOPRIL [Concomitant]
  9. CALCIUM [Concomitant]
  10. VITAMIN B [Concomitant]

REACTIONS (2)
  - Cystitis [None]
  - Nausea [None]
